FAERS Safety Report 8418641-3 (Version None)
Quarter: 2012Q2

REPORT INFORMATION
  Report Type: 
  Country: None (occurrence: None)
  Receive Date: 20120607
  Receipt Date: 20120529
  Transmission Date: 20120825
  Serious: Yes (Hospitalization)
  Sender: FDA-Public Use
  Company Number: FR-ELI_LILLY_AND_COMPANY-FR201205009941

PATIENT
  Age: 74 Year
  Sex: Male

DRUGS (1)
  1. FORTEO [Suspect]
     Dosage: UNK, UNKNOWN

REACTIONS (4)
  - CARDIAC MURMUR [None]
  - BRONCHITIS [None]
  - PYREXIA [None]
  - TACHYCARDIA [None]
